FAERS Safety Report 18887018 (Version 1)
Quarter: 2021Q1

REPORT INFORMATION
  Report Type: Spontaneous
  Country: CN (occurrence: CN)
  Receive Date: 20210212
  Receipt Date: 20210212
  Transmission Date: 20210420
  Serious: Yes (Other)
  Sender: FDA-Public Use
  Company Number: CN-BAXTER-2021BAX002700

PATIENT
  Age: 2 Year
  Sex: Female
  Weight: 13 kg

DRUGS (7)
  1. 0.9% SODIUM CHLORIDE INJECTION [Suspect]
     Active Substance: SODIUM CHLORIDE
     Indication: MEDICATION DILUTION
     Dosage: VINDESINE 1.6 MG + SODIUM CHLORIDE 20ML; COAD CHEMOTHERAPY
     Route: 040
     Dates: start: 20210105, end: 20210105
  2. DEXAMETHASONE. [Suspect]
     Active Substance: DEXAMETHASONE
     Indication: ACUTE LYMPHOCYTIC LEUKAEMIA
     Dosage: COAD CHEMOTHERAPY
     Route: 065
  3. 0.9% SODIUM CHLORIDE INJECTION [Suspect]
     Active Substance: SODIUM CHLORIDE
     Dosage: CYTARABINE 27 MG + SODIUM CHLORIDE 1ML; COAD CHEMOTHERAPY
     Route: 058
     Dates: start: 20210105, end: 20210109
  4. SAI DE SA (CYTARABINE) [Suspect]
     Active Substance: CYTARABINE
     Indication: ACUTE LYMPHOCYTIC LEUKAEMIA
     Dosage: CYTARABINE 27 MG + SODIUM CHLORIDE 1ML; COAD CHEMOTHERAPY
     Route: 058
     Dates: start: 20210105, end: 20210109
  5. 5% GLUCOSE AND 0.9% SODIUM CHLORIDE INJECTION [Suspect]
     Active Substance: DEXTROSE\SODIUM CHLORIDE
     Indication: MEDICATION DILUTION
     Dosage: CYCLOPHOSPHAMIDE 0.33G + (4:1) GLUCOSE AND SODIUM CHLORIDE 250ML; COAD CHEMOTHERAPY
     Route: 041
     Dates: start: 20210105, end: 20210105
  6. ENDOXAN [Suspect]
     Active Substance: CYCLOPHOSPHAMIDE
     Indication: ACUTE LYMPHOCYTIC LEUKAEMIA
     Dosage: CYCLOPHOSPHAMIDE 0.33G + (4:1) GLUCOSE AND SODIUM CHLORIDE 250ML; COAD CHEMOTHERAPY
     Route: 041
     Dates: start: 20210105, end: 20210105
  7. XI AI KE [Suspect]
     Active Substance: VINDESINE SULFATE
     Indication: ACUTE LYMPHOCYTIC LEUKAEMIA
     Dosage: VINDESINE 1.6 MG + SODIUM CHLORIDE 20 ML; COAD CHEMOTHERAPY
     Route: 040
     Dates: start: 20210105, end: 20210105

REACTIONS (1)
  - Myelosuppression [Recovering/Resolving]

NARRATIVE: CASE EVENT DATE: 20210115
